FAERS Safety Report 19402960 (Version 3)
Quarter: 2021Q4

REPORT INFORMATION
  Report Type: Spontaneous
  Country: RS (occurrence: RS)
  Receive Date: 20210610
  Receipt Date: 20211009
  Transmission Date: 20220303
  Serious: Yes (Death, Hospitalization, Other)
  Sender: FDA-Public Use
  Company Number: NVSC2021RS130639

PATIENT
  Age: 70 Year
  Sex: Male

DRUGS (2)
  1. COSENTYX [Suspect]
     Active Substance: SECUKINUMAB
     Indication: Psoriatic arthropathy
     Dosage: 150 MG, QMO
     Route: 058
     Dates: start: 202012
  2. COSENTYX [Suspect]
     Active Substance: SECUKINUMAB
     Dosage: UNK
     Route: 065
     Dates: start: 20210308

REACTIONS (4)
  - Cardiac arrest [Fatal]
  - Coronavirus pneumonia [Fatal]
  - Pyrexia [Fatal]
  - Respiratory failure [Unknown]

NARRATIVE: CASE EVENT DATE: 20210322
